FAERS Safety Report 7694157-7 (Version None)
Quarter: 2011Q3

REPORT INFORMATION
  Report Type: 
  Country: None (occurrence: None)
  Receive Date: 20110819
  Receipt Date: 20110810
  Transmission Date: 20111222
  Serious: Yes (Other)
  Sender: FDA-Public Use
  Company Number: DE-MILLENNIUM PHARMACEUTICALS, INC.-2011-02526

PATIENT

DRUGS (3)
  1. VELCADE [Suspect]
     Indication: HEPATIC NEOPLASM MALIGNANT
     Dosage: UNK
     Route: 042
     Dates: start: 20110301
  2. PREDNISONE [Concomitant]
     Dosage: UNK
     Dates: start: 20110301
  3. MELPHALAN HYDROCHLORIDE [Concomitant]
     Dosage: UNK
     Dates: start: 20110301

REACTIONS (3)
  - PSORIASIS [None]
  - SKIN REACTION [None]
  - OFF LABEL USE [None]
